FAERS Safety Report 4444904-2 (Version None)
Quarter: 2004Q3

REPORT INFORMATION
  Report Type: 
  Country: None (occurrence: None)
  Receive Date: 20040909
  Receipt Date: 20040830
  Transmission Date: 20050211
  Serious: Yes (Other)
  Sender: FDA-Public Use
  Company Number: SE-GLAXOSMITHKLINE-B0344335A

PATIENT
  Age: 51 Year
  Sex: Female

DRUGS (1)
  1. ZYBAN [Suspect]
     Dosage: 300MG PER DAY
     Route: 048
     Dates: start: 20040215, end: 20040320

REACTIONS (5)
  - ANGIONEUROTIC OEDEMA [None]
  - CHILLS [None]
  - OEDEMA MOUTH [None]
  - SWOLLEN TONGUE [None]
  - URTICARIA [None]
